FAERS Safety Report 24623658 (Version 1)
Quarter: 2024Q4

REPORT INFORMATION
  Report Type: Spontaneous
  Country: GB (occurrence: GB)
  Receive Date: 20241115
  Receipt Date: 20241115
  Transmission Date: 20250115
  Serious: Yes (Other)
  Sender: AUROBINDO
  Company Number: GB-MHRA-TPP1440631C24636800YC1730382033326

PATIENT
  Age: 74 Year
  Sex: Male
  Weight: 61 kg

DRUGS (10)
  1. AMOXICILLIN\CLAVULANIC ACID [Suspect]
     Active Substance: AMOXICILLIN\CLAVULANIC ACID
     Indication: Ill-defined disorder
     Dosage: UNK
     Route: 065
  2. SOLIFENACIN [Concomitant]
     Active Substance: SOLIFENACIN
     Indication: Ill-defined disorder
     Dosage: 1 DOSAGE FORM, DAILY
     Route: 065
     Dates: start: 20240916, end: 20240923
  3. NITROFURANTOIN [Concomitant]
     Active Substance: NITROFURANTOIN
     Indication: Ill-defined disorder
     Dosage: 1 DOSAGE FORM, TWO TIMES A DAY
     Route: 065
     Dates: start: 20240920, end: 20240927
  4. CETIRIZINE [Concomitant]
     Active Substance: CETIRIZINE HYDROCHLORIDE
     Indication: Ill-defined disorder
     Dosage: 1 DOSAGE FORM, DAILY
     Route: 065
     Dates: start: 20240928, end: 20241028
  5. BIMATOPROST\TIMOLOL [Concomitant]
     Active Substance: BIMATOPROST\TIMOLOL
     Indication: Ill-defined disorder
     Dosage: 1 DROP, DAILY
     Route: 065
     Dates: start: 20240223
  6. HUMALOG [Concomitant]
     Active Substance: INSULIN LISPRO
     Indication: Ill-defined disorder
     Dosage: UNK UNK, AS DIRECTED
     Route: 065
     Dates: start: 20240223
  7. HUMAPENT [Concomitant]
     Indication: Ill-defined disorder
     Dosage: UNK UNK, AS DIRECTED
     Route: 065
     Dates: start: 20240223
  8. LEVEMIR [Concomitant]
     Active Substance: INSULIN DETEMIR
     Indication: Ill-defined disorder
     Dosage: UNK UNK, AS DIRECTED
     Route: 065
     Dates: start: 20240223
  9. PRAVASTATIN [Concomitant]
     Active Substance: PRAVASTATIN
     Indication: Ill-defined disorder
     Dosage: 1 DOSAGE FORM, ONCE A DAY
     Route: 065
     Dates: start: 20240223
  10. TAMSULOSIN HYDROCHLORIDE [Concomitant]
     Active Substance: TAMSULOSIN HYDROCHLORIDE
     Indication: Ill-defined disorder
     Dosage: 1 DOSAGE FORM, DAILY
     Route: 065
     Dates: start: 20240223

REACTIONS (2)
  - Blister [Unknown]
  - Rash [Recovered/Resolved]

NARRATIVE: CASE EVENT DATE: 20241031
